FAERS Safety Report 7929121-3 (Version None)
Quarter: 2011Q4

REPORT INFORMATION
  Report Type: 
  Country: None (occurrence: None)
  Receive Date: 20111119
  Receipt Date: 20111109
  Transmission Date: 20120403
  Serious: Yes (Other)
  Sender: FDA-Public Use
  Company Number: JP-ASTRAZENECA-2011SE67969

PATIENT
  Age: 74 Year
  Sex: Female

DRUGS (4)
  1. IRESSA [Interacting]
     Route: 048
  2. VERAPAMIL HCL [Interacting]
     Dosage: DOSE UNKNOWN
     Route: 048
     Dates: end: 20111108
  3. IRESSA [Suspect]
     Indication: NON-SMALL CELL LUNG CANCER
     Route: 048
     Dates: start: 20111003
  4. URSO 250 [Concomitant]
     Dosage: DOSE UNKNOWN
     Route: 065
     Dates: start: 20111011

REACTIONS (2)
  - DRUG INTERACTION [None]
  - LIVER DISORDER [None]
